FAERS Safety Report 6835822-0 (Version None)
Quarter: 2010Q3

REPORT INFORMATION
  Report Type: 
  Country: None (occurrence: None)
  Receive Date: 20100712
  Receipt Date: 20100712
  Transmission Date: 20110219
  Serious: Yes (Other)
  Sender: FDA-Public Use
  Company Number: None

PATIENT
  Age: 56 Year
  Sex: Female
  Weight: 70.3075 kg

DRUGS (1)
  1. REQUIP [Suspect]
     Indication: RESTLESS LEGS SYNDROME
     Dosage: 1 TABLET EVERY DAY 5 PM PO
     Route: 048
     Dates: start: 20041001, end: 20100310

REACTIONS (4)
  - COMPULSIVE SHOPPING [None]
  - CONDITION AGGRAVATED [None]
  - ECONOMIC PROBLEM [None]
  - RESTLESS LEGS SYNDROME [None]
